FAERS Safety Report 4379991-3 (Version None)
Quarter: 2004Q2

REPORT INFORMATION
  Report Type: 
  Country: None (occurrence: None)
  Receive Date: 20040614
  Receipt Date: 20040413
  Transmission Date: 20050107
  Serious: No
  Sender: FDA-Public Use
  Company Number: 2004IM000519

PATIENT
  Age: 51 Year
  Sex: Male

DRUGS (1)
  1. ADVAFERON (A643_INTERFERON ALFACON-1) [Suspect]
     Indication: HEPATITIS C
     Dosage: 18 MU; QOD; SUBCUTANEOUS
     Route: 058
     Dates: start: 20030513

REACTIONS (5)
  - CELLULITIS [None]
  - INJECTION SITE ERYTHEMA [None]
  - INJECTION SITE NECROSIS [None]
  - RASH [None]
  - SKIN ULCER [None]
